FAERS Safety Report 15711226 (Version 1)
Quarter: 2018Q4

REPORT INFORMATION
  Report Type: Spontaneous
  Country: AU (occurrence: AU)
  Receive Date: 20181211
  Receipt Date: 20181211
  Transmission Date: 20190205
  Serious: Yes (Hospitalization)
  Sender: FDA-Public Use
  Company Number: AU-MYLANLABS-2018M1091472

PATIENT
  Age: 67 Year
  Sex: Male

DRUGS (5)
  1. ROCURONIUM [Suspect]
     Active Substance: ROCURONIUM BROMIDE
     Indication: PRODUCT USED FOR UNKNOWN INDICATION
     Route: 042
  2. EPINEPHRINE. [Suspect]
     Active Substance: EPINEPHRINE
     Indication: PRODUCT USED FOR UNKNOWN INDICATION
     Dosage: TOTAL OF 5MG OF ADRENALINE IN BOLUS BEFORE AN INFUSION WAS COMMENCED
     Route: 040
  3. PROPOFOL. [Concomitant]
     Active Substance: PROPOFOL
     Indication: GENERAL ANAESTHESIA
     Route: 065
  4. EPINEPHRINE. [Suspect]
     Active Substance: EPINEPHRINE
     Dosage: 80 MICROGRAMS/MINUTE
     Route: 041
  5. FENTANYL. [Concomitant]
     Active Substance: FENTANYL
     Indication: GENERAL ANAESTHESIA
     Route: 065

REACTIONS (5)
  - Systolic anterior motion of mitral valve [Recovered/Resolved]
  - Anaphylactic reaction [Recovered/Resolved]
  - Ventricular fibrillation [Recovered/Resolved]
  - Circulatory collapse [Recovered/Resolved]
  - Ventricular dysfunction [Recovered/Resolved]
